FAERS Safety Report 10756170 (Version 3)
Quarter: 2015Q1

REPORT INFORMATION
  Report Type: Spontaneous
  Country: US (occurrence: US)
  Receive Date: 20150202
  Receipt Date: 20150320
  Transmission Date: 20150721
  Serious: No
  Sender: FDA-Public Use
  Company Number: US-PFIZER INC-2015034591

PATIENT
  Age: 54 Year
  Sex: Female
  Weight: 84 kg

DRUGS (3)
  1. SPIRIVA [Concomitant]
     Active Substance: TIOTROPIUM BROMIDE MONOHYDRATE
     Indication: CHRONIC OBSTRUCTIVE PULMONARY DISEASE
     Dosage: UNK
  2. LYRICA [Suspect]
     Active Substance: PREGABALIN
     Indication: NEUROPATHY PERIPHERAL
     Dosage: UNK, 2X/DAY(75MG CAPSULE IN THE MORNING AND ONE 75MG CAPSULE IN THE EVENING)
     Route: 048
  3. LYRICA [Suspect]
     Active Substance: PREGABALIN
     Indication: PAIN
     Dosage: UNK UNK, 2X/DAY(150MG CAPSULE AFTER SHE EATS IN THE MORNING AND ONE 150MG AROUND 5 P.M.)
     Route: 048
     Dates: start: 201408

REACTIONS (2)
  - Drug effect incomplete [Recovered/Resolved]
  - Feeling abnormal [Unknown]
